FAERS Safety Report 8880463 (Version 2)
Quarter: 2013Q1

REPORT INFORMATION
  Report Type: Spontaneous
  Country: US (occurrence: US)
  Receive Date: 20121101
  Receipt Date: 20130116
  Transmission Date: 20140127
  Serious: Yes (Other)
  Sender: FDA-Public Use
  Company Number: PHEH2012US021186

PATIENT
  Sex: Male

DRUGS (1)
  1. TASIGNA [Suspect]
     Indication: CHRONIC MYELOID LEUKAEMIA
     Dosage: 300 MG, BID
     Route: 048
     Dates: start: 20120719

REACTIONS (2)
  - Neoplasm malignant [Unknown]
  - Second primary malignancy [Unknown]
